FAERS Safety Report 6841217-6 (Version None)
Quarter: 2010Q3

REPORT INFORMATION
  Report Type: 
  Country: None (occurrence: None)
  Receive Date: 20100714
  Receipt Date: 20070703
  Transmission Date: 20110219
  Serious: No
  Sender: FDA-Public Use
  Company Number: US-PFIZER INC-2007055263

PATIENT
  Sex: Male
  Weight: 86.4 kg

DRUGS (3)
  1. CHANTIX [Suspect]
     Indication: SMOKING CESSATION THERAPY
     Dates: start: 20070611
  2. ACETYLSALICYLIC ACID [Concomitant]
  3. IBUPROFEN [Concomitant]

REACTIONS (4)
  - FLATULENCE [None]
  - MIDDLE INSOMNIA [None]
  - RESTLESSNESS [None]
  - SLEEP DISORDER [None]
